FAERS Safety Report 9172612 (Version 1)
Quarter: 2012Q4

REPORT INFORMATION
  Report Type: 
  Country: US (occurrence: US)
  Receive Date: 20120911
  Receipt Date: 20120911
  Transmission Date: 20130627
  Serious: Yes (Other)
  Sender: FDA-Public Use
  Company Number: PHHY2012US078503

PATIENT
  Sex: Female

DRUGS (1)
  1. ASCRIPTIN BUFFERED ARTHRITISPAIN CAPLETS [Suspect]
     Indication: ARTHRITIS
     Dosage: 3 DF, daily
     Route: 048
     Dates: start: 1988

REACTIONS (6)
  - Colon cancer [Recovering/Resolving]
  - Lymphadenopathy [Unknown]
  - Lymph node pain [Unknown]
  - Dysphagia [Unknown]
  - Abscess [Recovered/Resolved]
  - Incorrect drug administration duration [Unknown]
